FAERS Safety Report 6080675-4 (Version None)
Quarter: 2009Q1

REPORT INFORMATION
  Report Type: 
  Country: None (occurrence: None)
  Receive Date: 20090217
  Receipt Date: 20090210
  Transmission Date: 20090719
  Serious: Yes (Other)
  Sender: FDA-Public Use
  Company Number: CH-GENENTECH-277106

PATIENT
  Sex: Female

DRUGS (2)
  1. RAPTIVA [Suspect]
     Indication: DRUG USE FOR UNKNOWN INDICATION
     Dosage: UNK
  2. FERRITILL (UNK INGREDIENTS) [Concomitant]
     Indication: BLOOD IRON INCREASED

REACTIONS (3)
  - BLOOD IRON INCREASED [None]
  - INFLAMMATION [None]
  - PLATELET COUNT DECREASED [None]
